FAERS Safety Report 9157688 (Version 3)
Quarter: 2013Q3

REPORT INFORMATION
  Report Type: Spontaneous
  Country: GB (occurrence: GB)
  Receive Date: 20130312
  Receipt Date: 20130930
  Transmission Date: 20140515
  Serious: Yes (Life-Threatening, Hospitalization, Other)
  Sender: FDA-Public Use
  Company Number: PHHY2013GB023695

PATIENT
  Age: 72 Year
  Sex: Female
  Weight: 65 kg

DRUGS (15)
  1. METHOTREXATE [Suspect]
     Indication: RHEUMATOID ARTHRITIS
     Dosage: 7.5 MG, QW
     Route: 048
  2. METHOTREXATE [Suspect]
     Dosage: 20 MG, QW
     Route: 048
     Dates: start: 19991028
  3. ROACTEMRA [Suspect]
     Indication: RHEUMATOID ARTHRITIS
     Dosage: 6 MG/KG, QMO
     Route: 042
     Dates: start: 20120306
  4. ROACTEMRA [Suspect]
     Dosage: 8 MG/KG, QMO
     Route: 042
     Dates: start: 20120306
  5. ROACTEMRA [Suspect]
     Dosage: 8 MG/KG, UNK
     Route: 042
     Dates: start: 20130212, end: 20130807
  6. CO-AMOXICLAV [Concomitant]
     Dosage: 625 MG, TID
     Route: 048
  7. INSULIN GLARGINE [Concomitant]
     Route: 058
  8. NOVORAPID [Concomitant]
     Route: 058
  9. METHOTREXATE [Concomitant]
     Dosage: 20 MG, QW
     Route: 048
  10. FOLIC ACID [Concomitant]
     Dosage: 5 MG, QW
     Route: 048
  11. HYDROXYCHLOROQUINE [Concomitant]
     Dosage: 200 MG, BID
     Route: 048
  12. LEVOTHYROXINE [Concomitant]
     Route: 048
  13. SERTRALINE [Concomitant]
     Route: 048
  14. NAPROXEN [Concomitant]
     Route: 048
  15. PARACETAMOL [Concomitant]
     Dosage: 1 G, PRN
     Route: 048

REACTIONS (4)
  - Pneumonia [Recovered/Resolved]
  - Lung disorder [Recovering/Resolving]
  - Haemothorax [Unknown]
  - Empyema [Recovering/Resolving]
